FAERS Safety Report 11553307 (Version 2)
Quarter: 2015Q4

REPORT INFORMATION
  Report Type: Report from Study
  Country: ES (occurrence: ES)
  Receive Date: 20150925
  Receipt Date: 20151006
  Transmission Date: 20160304
  Serious: Yes (Other)
  Sender: FDA-Public Use
  Company Number: ES-JNJFOC-20150306440

PATIENT

DRUGS (3)
  1. PEGINTERFERON ALFA-2A [Suspect]
     Active Substance: PEGINTERFERON ALFA-2A
     Indication: HEPATITIS C
     Route: 065
  2. SIMEPREVIR [Suspect]
     Active Substance: SIMEPREVIR
     Indication: HEPATITIS C
     Route: 048
  3. RIBAVIRIN. [Suspect]
     Active Substance: RIBAVIRIN
     Indication: HEPATITIS C
     Route: 065

REACTIONS (19)
  - Thrombocytopenia [Unknown]
  - Liver disorder [Unknown]
  - Encephalopathy [Unknown]
  - Dyspepsia [Unknown]
  - Oedema [Unknown]
  - Hyperbilirubinaemia [Unknown]
  - Hepatitis C [Unknown]
  - Cough [Unknown]
  - Urinary tract infection [Unknown]
  - Rash [Unknown]
  - Drug ineffective [Unknown]
  - Asthenia [Unknown]
  - Headache [Unknown]
  - Anaemia [Unknown]
  - Photosensitivity reaction [Unknown]
  - Ascites [Unknown]
  - Erythema [Unknown]
  - Neutropenia [Unknown]
  - Weight decreased [Unknown]
